FAERS Safety Report 17140327 (Version 1)
Quarter: 2019Q4

REPORT INFORMATION
  Report Type: Spontaneous
  Country: US (occurrence: US)
  Receive Date: 20191211
  Receipt Date: 20191211
  Transmission Date: 20200122
  Serious: No
  Sender: FDA-Public Use
  Company Number: US-UCBSA-2016013919

PATIENT
  Sex: Male

DRUGS (1)
  1. CIMZIA [Suspect]
     Active Substance: CERTOLIZUMAB PEGOL
     Indication: GASTROINTESTINAL DISORDER
     Dosage: 400 MG, EV 4 WEEKS
     Route: 058
     Dates: start: 20150824

REACTIONS (4)
  - Flatulence [Unknown]
  - Injection site erythema [Unknown]
  - Injection site swelling [Unknown]
  - Abdominal distension [Unknown]
